FAERS Safety Report 14584356 (Version 1)
Quarter: 2018Q1

REPORT INFORMATION
  Report Type: Spontaneous
  Country: US (occurrence: US)
  Receive Date: 20180301
  Receipt Date: 20180301
  Transmission Date: 20180509
  Serious: Yes (Other)
  Sender: FDA-Public Use
  Company Number: US-ROCHE-2077070

PATIENT
  Sex: Male

DRUGS (1)
  1. XELODA [Suspect]
     Active Substance: CAPECITABINE
     Indication: PRODUCT USED FOR UNKNOWN INDICATION
     Route: 065

REACTIONS (4)
  - Colon cancer metastatic [Not Recovered/Not Resolved]
  - Pain [Not Recovered/Not Resolved]
  - Metastases to liver [Not Recovered/Not Resolved]
  - Ill-defined disorder [Not Recovered/Not Resolved]
